FAERS Safety Report 25016528 (Version 1)
Quarter: 2025Q1

REPORT INFORMATION
  Report Type: Other
  Country: US (occurrence: US)
  Receive Date: 20250227
  Receipt Date: 20250227
  Transmission Date: 20250409
  Serious: Yes (Hospitalization, Other)
  Sender: ANI
  Company Number: US-ANIPHARMA-015760

PATIENT
  Age: 71 Year
  Sex: Female

DRUGS (2)
  1. FLECAINIDE [Suspect]
     Active Substance: FLECAINIDE
     Indication: Atrial fibrillation
  2. MOLNUPIRAVIR [Concomitant]
     Active Substance: MOLNUPIRAVIR
     Indication: COVID-19

REACTIONS (4)
  - Lactic acidosis [Recovering/Resolving]
  - Arrhythmic storm [Recovering/Resolving]
  - Cardiogenic shock [Recovering/Resolving]
  - Accidental overdose [Unknown]
